FAERS Safety Report 5499469-3 (Version None)
Quarter: 2007Q4

REPORT INFORMATION
  Report Type: 
  Country: None (occurrence: None)
  Receive Date: 20071026
  Receipt Date: 20071019
  Transmission Date: 20080405
  Serious: Yes (Death, Hospitalization)
  Sender: FDA-Public Use
  Company Number: A0689386A

PATIENT
  Age: 81 Year
  Sex: Male

DRUGS (7)
  1. TOSITUMOMAB [Suspect]
     Dosage: 450MG SINGLE DOSE
     Route: 042
     Dates: start: 20070905, end: 20070905
  2. IODINE I 131 TOSITUMOMAB [Suspect]
     Dosage: 5.4MCI SINGLE DOSE
     Route: 042
     Dates: start: 20070905, end: 20070905
  3. TOSITUMOMAB [Suspect]
     Dosage: 450MG SINGLE DOSE
     Route: 042
     Dates: start: 20070912, end: 20070912
  4. IODINE I 131 TOSITUMOMAB [Suspect]
     Dosage: 52.2MCI SINGLE DOSE
     Route: 042
     Dates: start: 20070912, end: 20070912
  5. ALTACE [Concomitant]
  6. ATENOLOL [Concomitant]
  7. AVANDIA [Concomitant]

REACTIONS (14)
  - ANAEMIA [None]
  - BUNDLE BRANCH BLOCK [None]
  - CONFUSIONAL STATE [None]
  - DEHYDRATION [None]
  - DYSPNOEA [None]
  - GASTROINTESTINAL HAEMORRHAGE [None]
  - HALLUCINATION, VISUAL [None]
  - HYPONATRAEMIA [None]
  - MALNUTRITION [None]
  - MYOCARDIAL INFARCTION [None]
  - PNEUMONIA [None]
  - PRODUCTIVE COUGH [None]
  - PYREXIA [None]
  - SINUS TACHYCARDIA [None]
